FAERS Safety Report 5358375-5 (Version None)
Quarter: 2007Q2

REPORT INFORMATION
  Report Type: 
  Country: None (occurrence: None)
  Receive Date: 20070613
  Receipt Date: 20070613
  Transmission Date: 20071010
  Serious: Yes (Hospitalization)
  Sender: FDA-Public Use
  Company Number: None

PATIENT
  Sex: Female
  Weight: 91.8 kg

DRUGS (6)
  1. CYCLOPHOSPHAMIDE [Suspect]
     Dosage: 1230 MG
  2. DOXORUBICIN HYDROCHLORIDE [Suspect]
     Dosage: 90 MG
  3. LIPITOR [Concomitant]
  4. METRONIDAZOLE [Concomitant]
  5. TOPROL-XL [Concomitant]
  6. ZANTAC [Concomitant]

REACTIONS (6)
  - BLOOD CULTURE POSITIVE [None]
  - CLOSTRIDIAL INFECTION [None]
  - DEEP VEIN THROMBOSIS [None]
  - FEBRILE NEUTROPENIA [None]
  - PSEUDOMONAS INFECTION [None]
  - PULMONARY EMBOLISM [None]
